FAERS Safety Report 20029868 (Version 2)
Quarter: 2021Q4

REPORT INFORMATION
  Report Type: Spontaneous
  Country: CA (occurrence: CA)
  Receive Date: 20211103
  Receipt Date: 20211123
  Transmission Date: 20220303
  Serious: Yes (Death, Other)
  Sender: FDA-Public Use
  Company Number: CA-AMGEN-CANSP2021167501

PATIENT

DRUGS (1)
  1. ARANESP [Suspect]
     Active Substance: DARBEPOETIN ALFA
     Indication: Anaemia
     Dosage: UNK MICROGRAM, QWK
     Route: 065

REACTIONS (7)
  - Macrocytosis [Fatal]
  - Cardiac disorder [Fatal]
  - Withdrawal syndrome [Fatal]
  - Neoplasm malignant [Fatal]
  - Sepsis [Fatal]
  - Cerebrovascular accident [Fatal]
  - Hypothyroidism [Unknown]
